FAERS Safety Report 11542847 (Version 1)
Quarter: 2015Q3

REPORT INFORMATION
  Report Type: Spontaneous
  Country: US (occurrence: US)
  Receive Date: 20150903
  Receipt Date: 20150903
  Transmission Date: 20151125
  Serious: No
  Sender: FDA-Public Use
  Company Number: US-ELI_LILLY_AND_COMPANY-US201205003699

PATIENT
  Age: 62 Year
  Sex: Female

DRUGS (3)
  1. LANTUS [Concomitant]
     Active Substance: INSULIN GLARGINE
     Dosage: UNK, EACH EVENING
  2. HUMALOG [Suspect]
     Active Substance: INSULIN LISPRO
     Indication: DIABETES MELLITUS
     Dosage: 32 U, TID
     Dates: start: 201112
  3. HUMALOG [Suspect]
     Active Substance: INSULIN LISPRO
     Dosage: 32 U, TID
     Dates: start: 201112

REACTIONS (4)
  - Malaise [Unknown]
  - Blood glucose increased [Unknown]
  - Injection site pain [Unknown]
  - Vomiting [Unknown]
